FAERS Safety Report 9415315 (Version 4)
Quarter: 2014Q1

REPORT INFORMATION
  Report Type: Report from Study
  Country: BE (occurrence: BE)
  Receive Date: 20130723
  Receipt Date: 20140307
  Transmission Date: 20141002
  Serious: Yes (Death, Hospitalization, Other)
  Sender: FDA-Public Use
  Company Number: BE-BRISTOL-MYERS SQUIBB COMPANY-19029594

PATIENT
  Age: 74 Year
  Sex: Female

DRUGS (8)
  1. BELATACEPT [Suspect]
     Indication: RENAL TRANSPLANT
     Dosage: 275 MG 26OCT13 05JAN14
     Route: 042
     Dates: start: 20071026, end: 20140105
  2. CELLCEPT [Suspect]
     Dosage: 250 MG CAPS
  3. MEDROL [Suspect]
     Dosage: TABS
  4. D-CURE [Concomitant]
  5. ELTHYRONE [Concomitant]
  6. EMCONCOR [Concomitant]
  7. XANAX [Concomitant]
  8. FRAXODI [Concomitant]

REACTIONS (1)
  - Oesophageal carcinoma [Fatal]
